FAERS Safety Report 7512938-7 (Version None)
Quarter: 2011Q2

REPORT INFORMATION
  Report Type: 
  Country: None (occurrence: None)
  Receive Date: 20110531
  Receipt Date: 20101130
  Transmission Date: 20111010
  Serious: No
  Sender: FDA-Public Use
  Company Number: US-NOVEN-ALL1-2010-06252

PATIENT
  Sex: Male
  Weight: 27.664 kg

DRUGS (2)
  1. DAYTRANA [Suspect]
     Dosage: UNK MG, 1X/DAY:QD
     Route: 062
     Dates: start: 20050101, end: 20100901
  2. DAYTRANA [Suspect]
     Dosage: 30 MG, 1X/DAY:QD (2-30 MG PATCHES)
     Route: 062
     Dates: start: 20100901

REACTIONS (3)
  - PRODUCT QUALITY ISSUE [None]
  - OVERDOSE [None]
  - DRUG EFFECT DECREASED [None]
